FAERS Safety Report 20886692 (Version 1)
Quarter: 2022Q2

REPORT INFORMATION
  Report Type: Report from Study
  Country: US (occurrence: US)
  Receive Date: 20220527
  Receipt Date: 20220527
  Transmission Date: 20220720
  Serious: Yes (Other)
  Sender: FDA-Public Use
  Company Number: US-ABBVIE-22K-163-4413216-00

PATIENT
  Age: 45 Year
  Sex: Female
  Weight: 59.928 kg

DRUGS (13)
  1. HUMIRA [Suspect]
     Active Substance: ADALIMUMAB
     Indication: Illness
     Route: 058
     Dates: start: 20210427
  2. HUMIRA [Suspect]
     Active Substance: ADALIMUMAB
     Indication: Spondyloarthropathy
  3. BOTOX [Concomitant]
     Active Substance: ONABOTULINUMTOXINA
     Indication: Product used for unknown indication
  4. METHYLTESTOSTERONE [Concomitant]
     Active Substance: METHYLTESTOSTERONE
     Indication: Product used for unknown indication
  5. VITAMIN D3 [Concomitant]
     Active Substance: CHOLECALCIFEROL
     Indication: Product used for unknown indication
  6. VITAMIN D3 [Concomitant]
     Active Substance: CHOLECALCIFEROL
  7. TRAMADOL HCL [Concomitant]
     Active Substance: TRAMADOL HYDROCHLORIDE
     Indication: Product used for unknown indication
  8. AJOVY [Concomitant]
     Active Substance: FREMANEZUMAB-VFRM
     Indication: Product used for unknown indication
  9. BUSPIRONE HCL [Concomitant]
     Active Substance: BUSPIRONE HYDROCHLORIDE
     Indication: Product used for unknown indication
  10. AMITRIPTYLINE [Concomitant]
     Active Substance: AMITRIPTYLINE
     Indication: Product used for unknown indication
  11. PREGABALIN [Concomitant]
     Active Substance: PREGABALIN
     Indication: Product used for unknown indication
  12. TRAMADOL HCL ER [Concomitant]
     Indication: Product used for unknown indication
     Dosage: ER 24H
  13. ESTROGENS [Concomitant]
     Active Substance: ESTROGENS
     Indication: Product used for unknown indication

REACTIONS (2)
  - Seizure [Unknown]
  - Dysarthria [Unknown]

NARRATIVE: CASE EVENT DATE: 20220524
